FAERS Safety Report 5726681-8 (Version None)
Quarter: 2008Q2

REPORT INFORMATION
  Report Type: 
  Country: None (occurrence: None)
  Receive Date: 20080502
  Receipt Date: 20080429
  Transmission Date: 20081010
  Serious: Yes (Hospitalization)
  Sender: FDA-Public Use
  Company Number: GB-BOEHRINGER INGELHEIM GMBH, GERMANY-2008-UK-01138UK

PATIENT
  Age: 92 Year
  Sex: Male

DRUGS (4)
  1. DIPYRIDAMOLE [Suspect]
     Indication: CEREBROVASCULAR ACCIDENT
     Dosage: 200MG 2/1 DAYS
     Route: 048
     Dates: end: 20080418
  2. ASPIRIN [Suspect]
     Indication: CEREBROVASCULAR ACCIDENT
     Route: 048
     Dates: end: 20080418
  3. DIGOXIN [Concomitant]
     Indication: ATRIAL FIBRILLATION
     Route: 048
  4. PARACETAMOL [Concomitant]
     Indication: PAIN
     Dosage: 4 AS NECESSARY
     Route: 048

REACTIONS (1)
  - GASTROINTESTINAL HAEMORRHAGE [None]
